FAERS Safety Report 11676601 (Version 2)
Quarter: 2015Q4

REPORT INFORMATION
  Report Type: Spontaneous
  Country: US (occurrence: US)
  Receive Date: 20151028
  Receipt Date: 20151104
  Transmission Date: 20160304
  Serious: No
  Sender: FDA-Public Use
  Company Number: US-PFIZER INC-2015364389

PATIENT
  Age: 71 Year
  Sex: Male
  Weight: 118 kg

DRUGS (2)
  1. VIAGRA [Suspect]
     Active Substance: SILDENAFIL CITRATE
     Indication: ERECTILE DYSFUNCTION
     Dosage: 50 MG, (TO TAKE 1 HOUR BEFORE HAVING SEX. SAT NIGHT I TOOK 1, THEN LAST NIGHT I TOOK 1)
     Route: 048
     Dates: start: 20151024
  2. VIAGRA [Suspect]
     Active Substance: SILDENAFIL CITRATE
     Dosage: 50 UNK, UNK
     Route: 048
     Dates: start: 20151025

REACTIONS (2)
  - Drug effect incomplete [Recovered/Resolved]
  - Headache [Recovered/Resolved]

NARRATIVE: CASE EVENT DATE: 20151024
